FAERS Safety Report 15666149 (Version 1)
Quarter: 2018Q4

REPORT INFORMATION
  Report Type: Spontaneous
  Country: US (occurrence: US)
  Receive Date: 20181128
  Receipt Date: 20181128
  Transmission Date: 20190205
  Serious: Yes (Disabling)
  Sender: FDA-Public Use
  Company Number: None

PATIENT
  Age: 58 Year
  Sex: Female
  Weight: 81 kg

DRUGS (2)
  1. OXYCOD/APAP TAB 10-325MG [Suspect]
     Active Substance: ACETAMINOPHEN\OXYCODONE HYDROCHLORIDE
     Indication: INTERVERTEBRAL DISC DISORDER
     Dosage: ?          QUANTITY:112 TABLET(S);?
     Route: 048
     Dates: start: 20181119, end: 20181123
  2. OXYCOD/APAP TAB 10-325MG [Suspect]
     Active Substance: ACETAMINOPHEN\OXYCODONE HYDROCHLORIDE
     Indication: ARTHROPATHY
     Dosage: ?          QUANTITY:112 TABLET(S);?
     Route: 048
     Dates: start: 20181119, end: 20181123

REACTIONS (3)
  - Dizziness [None]
  - Feeling abnormal [None]
  - Drug ineffective [None]

NARRATIVE: CASE EVENT DATE: 20181119
